FAERS Safety Report 21450968 (Version 4)
Quarter: 2024Q3

REPORT INFORMATION
  Report Type: Spontaneous
  Country: NL (occurrence: NL)
  Receive Date: 20221013
  Receipt Date: 20240923
  Transmission Date: 20241017
  Serious: Yes (Hospitalization, Other)
  Sender: TAKEDA
  Company Number: NL-TAKEDA-2022TUS072071

PATIENT
  Age: 44 Year
  Sex: Female

DRUGS (2)
  1. KIOVIG [Suspect]
     Active Substance: HUMAN IMMUNOGLOBULIN G
     Indication: Primary immunodeficiency syndrome
     Dosage: UNK
     Route: 042
  2. COVID-19 VACCINE NOS [Suspect]
     Active Substance: COVID-19 VACCINE
     Indication: COVID-19 immunisation
     Dosage: UNK
     Route: 065

REACTIONS (11)
  - Non-Hodgkin^s lymphoma [Unknown]
  - Thrombosis [Unknown]
  - Illness [Recovered/Resolved]
  - Impaired healing [Recovering/Resolving]
  - Ankle fracture [Recovering/Resolving]
  - Fear of injection [Not Recovered/Not Resolved]
  - Administration site bruise [Not Recovered/Not Resolved]
  - Vaccine induced antibody absent [Unknown]
  - Fatigue [Unknown]
  - Foot fracture [Recovered/Resolved with Sequelae]
  - Ligament rupture [Recovered/Resolved with Sequelae]

NARRATIVE: CASE EVENT DATE: 20220901
